FAERS Safety Report 7470241-8 (Version None)
Quarter: 2011Q2

REPORT INFORMATION
  Report Type: 
  Country: None (occurrence: None)
  Receive Date: 20110510
  Receipt Date: 20110429
  Transmission Date: 20111010
  Serious: Yes (Other)
  Sender: FDA-Public Use
  Company Number: PHHY2011GB38305

PATIENT
  Sex: Female

DRUGS (3)
  1. FLUOXETINE [Suspect]
     Dosage: 40 MG, DAILY
  2. DIAMORPHINE [Concomitant]
     Dosage: UNK
  3. FLUOXETINE [Suspect]
     Indication: DEPRESSION
     Dosage: 20 MG, DAILY

REACTIONS (3)
  - PROLONGED LABOUR [None]
  - DRUG EXPOSURE DURING PREGNANCY [None]
  - MECONIUM IN AMNIOTIC FLUID [None]
